FAERS Safety Report 25999923 (Version 1)
Quarter: 2025Q4

REPORT INFORMATION
  Report Type: Spontaneous
  Country: GB (occurrence: GB)
  Receive Date: 20251105
  Receipt Date: 20251105
  Transmission Date: 20260118
  Serious: Yes (Disabling, Other)
  Sender: AUROBINDO
  Company Number: GB-MHRA-MED-202510230821475560-PVFBK

PATIENT
  Sex: Female
  Weight: 68 kg

DRUGS (2)
  1. METRONIDAZOLE [Suspect]
     Active Substance: METRONIDAZOLE
     Indication: Tooth infection
     Dosage: 400 MILLIGRAM, 3 TIMES A DAY
     Route: 065
     Dates: start: 20250814, end: 20250825
  2. NYSTATIN [Suspect]
     Active Substance: NYSTATIN
     Indication: Tooth infection
     Dosage: 400 MILLIGRAM, 3 TIMES A DAY
     Route: 065
     Dates: start: 20250814, end: 20250825

REACTIONS (5)
  - Dizziness postural [Recovered/Resolved with Sequelae]
  - Vertigo [Recovered/Resolved with Sequelae]
  - Chromaturia [Recovered/Resolved with Sequelae]
  - Renal pain [Recovered/Resolved with Sequelae]
  - Tinnitus [Not Recovered/Not Resolved]

NARRATIVE: CASE EVENT DATE: 20250815
